FAERS Safety Report 5836703-1 (Version None)
Quarter: 2008Q3

REPORT INFORMATION
  Report Type: 
  Country: None (occurrence: None)
  Receive Date: 20080807
  Receipt Date: 20080728
  Transmission Date: 20090109
  Serious: Yes (Other)
  Sender: FDA-Public Use
  Company Number: PT-TEVA-175224ISR

PATIENT
  Age: 9 Year
  Sex: Male

DRUGS (3)
  1. METHOTREXATE [Suspect]
     Route: 037
  2. METHOTREXATE [Suspect]
     Route: 042
  3. PREDNISOLONE [Concomitant]

REACTIONS (1)
  - ANAPHYLACTOID REACTION [None]
